FAERS Safety Report 6989549-5 (Version None)
Quarter: 2010Q3

REPORT INFORMATION
  Report Type: 
  Country: None (occurrence: None)
  Receive Date: 20100916
  Receipt Date: 20100107
  Transmission Date: 20110219
  Serious: Yes (Death)
  Sender: FDA-Public Use
  Company Number: NL-PFIZER INC-2010002985

PATIENT
  Sex: Male
  Weight: 70 kg

DRUGS (4)
  1. LYRICA [Suspect]
     Indication: NEUROPATHY PERIPHERAL
     Dosage: UNK
     Dates: start: 20091224
  2. ACENOCOUMAROL [Suspect]
     Indication: ATRIAL FIBRILLATION
     Dosage: UNK
     Dates: start: 20070101
  3. LASIX [Concomitant]
  4. FERROGRADUMET [Concomitant]

REACTIONS (2)
  - DEATH [None]
  - GASTROINTESTINAL HAEMORRHAGE [None]
